FAERS Safety Report 21055234 (Version 2)
Quarter: 2022Q3

REPORT INFORMATION
  Report Type: Spontaneous
  Country: IL (occurrence: IL)
  Receive Date: 20220708
  Receipt Date: 20220729
  Transmission Date: 20221027
  Serious: Yes (Other)
  Sender: FDA-Public Use
  Company Number: IL-SUN PHARMACEUTICAL INDUSTRIES LTD-2022R1-343663

PATIENT
  Weight: 1.02 kg

DRUGS (1)
  1. ACETAMINOPHEN [Suspect]
     Active Substance: ACETAMINOPHEN
     Indication: Patent ductus arteriosus
     Dosage: 60 MILLIGRAM/KILOGRAM,PER OS (100 MG/ML) DAILY
     Route: 065

REACTIONS (2)
  - Haemolysis [Unknown]
  - Haemodynamic instability [Unknown]
